FAERS Safety Report 9511558 (Version 1)
Quarter: 2013Q3

REPORT INFORMATION
  Report Type: Spontaneous
  Country: US (occurrence: None)
  Receive Date: 20130909
  Receipt Date: 20130909
  Transmission Date: 20140515
  Serious: Yes (Other)
  Sender: FDA-Public Use
  Company Number: None

PATIENT
  Age: 43 Year
  Sex: Female
  Weight: 102.51 kg

DRUGS (1)
  1. EFFEXOR XR [Suspect]
     Indication: SOCIAL PHOBIA
     Dosage: 225 MG ONCE DAILY

REACTIONS (4)
  - Anxiety [None]
  - Tremor [None]
  - Feeling abnormal [None]
  - Dyskinesia [None]
